FAERS Safety Report 15851835 (Version 2)
Quarter: 2019Q1

REPORT INFORMATION
  Report Type: Spontaneous
  Country: JP (occurrence: JP)
  Receive Date: 20190122
  Receipt Date: 20190213
  Transmission Date: 20190417
  Serious: Yes (Other)
  Sender: FDA-Public Use
  Company Number: JP-TEVA-2019-JP-000266J

PATIENT
  Sex: Male

DRUGS (1)
  1. CERCINE [Suspect]
     Active Substance: DIAZEPAM
     Indication: TENSION
     Dosage: AS NEEDED BASIS?DOSAGE IS UNKNOWN
     Route: 048

REACTIONS (4)
  - Fall [Unknown]
  - Cephalhaematoma [Unknown]
  - Brain contusion [Unknown]
  - Hydrocephalus [Unknown]

NARRATIVE: CASE EVENT DATE: 20181101
